FAERS Safety Report 14253184 (Version 1)
Quarter: 2017Q4

REPORT INFORMATION
  Report Type: Spontaneous
  Country: BE (occurrence: BE)
  Receive Date: 20171205
  Receipt Date: 20171205
  Transmission Date: 20180321
  Serious: Yes (Other)
  Sender: FDA-Public Use
  Company Number: BE-AMGEN-BELSP2017178409

PATIENT
  Age: 32 Year
  Sex: Female

DRUGS (2)
  1. XGEVA [Suspect]
     Active Substance: DENOSUMAB
     Indication: NON-SMALL CELL LUNG CANCER
  2. XGEVA [Suspect]
     Active Substance: DENOSUMAB
     Indication: METASTASES TO BONE
     Dosage: 120 MG, Q4WK
     Route: 065
     Dates: start: 20121031

REACTIONS (2)
  - Periodontitis [Recovered/Resolved]
  - Temporomandibular joint syndrome [Recovered/Resolved]

NARRATIVE: CASE EVENT DATE: 20130510
